FAERS Safety Report 18637608 (Version 1)
Quarter: 2020Q4

REPORT INFORMATION
  Report Type: Spontaneous
  Country: US (occurrence: US)
  Receive Date: 20201218
  Receipt Date: 20201218
  Transmission Date: 20210114
  Serious: No
  Sender: FDA-Public Use
  Company Number: NVSC2020US333956

PATIENT
  Sex: Male

DRUGS (1)
  1. TAFINLAR [Suspect]
     Active Substance: DABRAFENIB MESYLATE
     Indication: LANGERHANS^ CELL HISTIOCYTOSIS
     Dosage: 25 MG, BID
     Route: 048
     Dates: start: 20200917

REACTIONS (1)
  - Wrong technique in product usage process [Unknown]
